FAERS Safety Report 9228143 (Version 2)
Quarter: 2013Q2

REPORT INFORMATION
  Report Type: Report from Study
  Country: IT (occurrence: IT)
  Receive Date: 20130412
  Receipt Date: 20130606
  Transmission Date: 20140414
  Serious: Yes (Other)
  Sender: FDA-Public Use
  Company Number: IT-ROCHE-1209255

PATIENT
  Sex: 0

DRUGS (6)
  1. ALTEPLASE [Suspect]
     Indication: ACUTE MYOCARDIAL INFARCTION
     Route: 065
  2. HEPARIN [Suspect]
     Indication: ACUTE MYOCARDIAL INFARCTION
     Route: 065
  3. TIROFIBAN [Suspect]
     Indication: ACUTE MYOCARDIAL INFARCTION
     Dosage: BOLUS
     Route: 040
  4. TIROFIBAN [Suspect]
     Dosage: 0.15 MCG/KG/MIN
     Route: 042
  5. ASPIRIN [Concomitant]
  6. ACE-INHIBITOR [Concomitant]

REACTIONS (3)
  - Angina pectoris [Unknown]
  - Drug ineffective [Unknown]
  - Cardiac failure congestive [Recovered/Resolved]
